FAERS Safety Report 21563732 (Version 1)
Quarter: 2022Q4

REPORT INFORMATION
  Report Type: Spontaneous
  Country: US (occurrence: US)
  Receive Date: 20221108
  Receipt Date: 20221108
  Transmission Date: 20230113
  Serious: No
  Sender: FDA-Public Use
  Company Number: US-BRISTOL-MYERS SQUIBB COMPANY-2022-133877

PATIENT

DRUGS (1)
  1. NULOJIX [Suspect]
     Active Substance: BELATACEPT
     Indication: Product used for unknown indication
     Dosage: 500MG IV EVERY 5 WEEKS FOR A PATIENT USING A ?QUANTITY OF 2 (250MG) VIALS
     Route: 042

REACTIONS (1)
  - Product preparation error [Unknown]
